FAERS Safety Report 4661728-1 (Version None)
Quarter: 2005Q2

REPORT INFORMATION
  Report Type: 
  Country: None (occurrence: None)
  Receive Date: 20050513
  Receipt Date: 20050119
  Transmission Date: 20051028
  Serious: Yes (Other)
  Sender: FDA-Public Use
  Company Number: FR-ROCHE-392916

PATIENT
  Age: 17 Year
  Sex: Male
  Weight: 69 kg

DRUGS (2)
  1. ROACCUTANE [Suspect]
     Indication: ACNE
     Route: 048
     Dates: start: 20040201
  2. ROACCUTANE [Suspect]
     Route: 048
     Dates: end: 20050301

REACTIONS (3)
  - ESCHERICHIA URINARY TRACT INFECTION [None]
  - NEPHROLITHIASIS [None]
  - RENAL CYST INFECTION [None]
